FAERS Safety Report 5678209-9 (Version None)
Quarter: 2008Q1

REPORT INFORMATION
  Report Type: 
  Country: None (occurrence: None)
  Receive Date: 20080319
  Receipt Date: 20080307
  Transmission Date: 20080703
  Serious: Yes (Death)
  Sender: FDA-Public Use
  Company Number: GXKR2008CH02437

PATIENT
  Age: 3 Year
  Sex: Male

DRUGS (5)
  1. METHOTREXATE [Suspect]
     Indication: ACUTE LYMPHOCYTIC LEUKAEMIA
     Dosage: 20 MG/M2, QW, ORAL
     Route: 048
  2. METHOTREXATE [Suspect]
     Dosage: INTRATHECAL
     Route: 037
  3. VINCRISTINE [Suspect]
     Indication: ACUTE LYMPHOCYTIC LEUKAEMIA
     Dosage: 1.5 MG/M2, ONCE/SINGLE
  4. DEXAMETHASONE [Suspect]
     Indication: ACUTE LYMPHOCYTIC LEUKAEMIA
     Dosage: 6 MG/M2/DAY, ORAL
     Route: 048
  5. MERCAPTOPURINE [Suspect]
     Indication: ACUTE LYMPHOCYTIC LEUKAEMIA
     Dosage: 75 MG/M2/DAY, ORAL
     Route: 048

REACTIONS (15)
  - ADENOVIRAL HEPATITIS [None]
  - BRAIN HYPOXIA [None]
  - COAGULATION TEST ABNORMAL [None]
  - COAGULOPATHY [None]
  - CONVULSION [None]
  - FEBRILE NEUTROPENIA [None]
  - GASTROINTESTINAL HAEMORRHAGE [None]
  - GRAND MAL CONVULSION [None]
  - HAEMORRHAGE [None]
  - HAEMORRHAGE INTRACRANIAL [None]
  - MULTI-ORGAN FAILURE [None]
  - PHARYNGEAL HAEMORRHAGE [None]
  - PULMONARY HAEMORRHAGE [None]
  - RHINITIS [None]
  - WHITE BLOOD CELL COUNT DECREASED [None]
